FAERS Safety Report 12737381 (Version 1)
Quarter: 2016Q3

REPORT INFORMATION
  Report Type: Spontaneous
  Country: US (occurrence: US)
  Receive Date: 20160912
  Receipt Date: 20160912
  Transmission Date: 20161109
  Serious: Yes (Other)
  Sender: FDA-Public Use
  Company Number: None

PATIENT
  Age: 70 Year
  Sex: Female
  Weight: 76.5 kg

DRUGS (7)
  1. BIOTIN [Concomitant]
     Active Substance: BIOTIN
  2. VIT D WITH CALCIUM [Concomitant]
  3. BIOFREEZE [Suspect]
     Active Substance: MENTHOL
     Indication: ARTHRALGIA
     Route: 061
     Dates: start: 20160908, end: 20160908
  4. SIMVASTATIN. [Concomitant]
     Active Substance: SIMVASTATIN
  5. CYMBALTA [Concomitant]
     Active Substance: DULOXETINE HYDROCHLORIDE
  6. FLEXERIL [Concomitant]
     Active Substance: CYCLOBENZAPRINE HYDROCHLORIDE
  7. FISH OIL [Concomitant]
     Active Substance: FISH OIL

REACTIONS (4)
  - Somnolence [None]
  - Drug intolerance [None]
  - Malaise [None]
  - Swelling face [None]

NARRATIVE: CASE EVENT DATE: 20160908
